FAERS Safety Report 21298038 (Version 1)
Quarter: 2022Q3

REPORT INFORMATION
  Report Type: Spontaneous
  Country: US (occurrence: US)
  Receive Date: 20220906
  Receipt Date: 20220906
  Transmission Date: 20221027
  Serious: Yes (Other)
  Sender: FDA-Public Use
  Company Number: US-ROCHE-3165717

PATIENT
  Sex: Male
  Weight: 94.431 kg

DRUGS (3)
  1. CLONAZEPAM [Suspect]
     Active Substance: CLONAZEPAM
     Indication: Multiple sclerosis
  2. CYCLOBENZAPRINE [Concomitant]
     Active Substance: CYCLOBENZAPRINE
  3. TYSABRI [Concomitant]
     Active Substance: NATALIZUMAB

REACTIONS (31)
  - Arnold-Chiari malformation [Unknown]
  - Urinary retention [Unknown]
  - Spinal stenosis [Unknown]
  - JC polyomavirus test positive [Unknown]
  - Attention deficit hyperactivity disorder [Unknown]
  - Balance disorder [Unknown]
  - Toothache [Unknown]
  - Muscle spasms [Unknown]
  - Depression [Unknown]
  - Fatigue [Unknown]
  - Mental impairment [Unknown]
  - Weight increased [Unknown]
  - Asthenia [Unknown]
  - Pollakiuria [Unknown]
  - Arthralgia [Unknown]
  - White matter lesion [Unknown]
  - Cognitive disorder [Unknown]
  - Pain [Unknown]
  - Aphasia [Unknown]
  - Pain in extremity [Unknown]
  - Cyst [Unknown]
  - Sciatica [Unknown]
  - Disturbance in attention [Unknown]
  - Muscle spasms [Unknown]
  - Memory impairment [Unknown]
  - Back disorder [Unknown]
  - Gait disturbance [Unknown]
  - Speech disorder [Unknown]
  - Tremor [Unknown]
  - Flatulence [Unknown]
  - Product use in unapproved indication [Unknown]
